FAERS Safety Report 17173705 (Version 1)
Quarter: 2019Q4

REPORT INFORMATION
  Report Type: Report from Study
  Country: None (occurrence: US)
  Receive Date: 20191218
  Receipt Date: 20191218
  Transmission Date: 20200122
  Serious: Yes (Hospitalization, Other)
  Sender: FDA-Public Use
  Company Number: US-ABBVIE-19K-163-2994019-00

PATIENT
  Age: 63 Year
  Sex: Male

DRUGS (1)
  1. HUMIRA [Suspect]
     Active Substance: ADALIMUMAB
     Indication: RHEUMATOID ARTHRITIS
     Route: 058

REACTIONS (8)
  - Gait disturbance [Unknown]
  - Sepsis [Unknown]
  - Mental impairment [Unknown]
  - Post procedural infection [Unknown]
  - Spinal operation [Not Recovered/Not Resolved]
  - Cardiac arrest [Recovered/Resolved]
  - Influenza [Unknown]
  - Respiratory failure [Unknown]

NARRATIVE: CASE EVENT DATE: 2019
